FAERS Safety Report 26172313 (Version 1)
Quarter: 2025Q4

REPORT INFORMATION
  Report Type: Report from Study
  Country: EU (occurrence: EU)
  Receive Date: 20251218
  Receipt Date: 20251218
  Transmission Date: 20260118
  Serious: Yes (Other)
  Sender: JOHNSON AND JOHNSON
  Company Number: EU-JNJFOC-20251220138

PATIENT

DRUGS (2)
  1. RYBREVANT [Suspect]
     Active Substance: AMIVANTAMAB-VMJW
     Indication: Non-small cell lung cancer metastatic
  2. LAZCLUZE [Suspect]
     Active Substance: LAZERTINIB
     Indication: Non-small cell lung cancer metastatic

REACTIONS (1)
  - Skin irritation [Recovered/Resolved]

NARRATIVE: CASE EVENT DATE: 20250801
